FAERS Safety Report 6467500-4 (Version None)
Quarter: 2009Q4

REPORT INFORMATION
  Report Type: 
  Country: None (occurrence: None)
  Receive Date: 20091202
  Receipt Date: 20091126
  Transmission Date: 20100525
  Serious: Yes (Death, Hospitalization)
  Sender: FDA-Public Use
  Company Number: BR-ELI_LILLY_AND_COMPANY-BR200911001166

PATIENT
  Age: 47 Year
  Sex: Male
  Weight: 98.5 kg

DRUGS (4)
  1. BYETTA [Suspect]
     Dosage: UNK, UNKNOWN
     Route: 058
     Dates: start: 20090601
  2. PURAN T4 [Concomitant]
     Dosage: 150 UG, UNKNOWN
     Route: 065
  3. GLUCOVANCE [Concomitant]
     Dosage: UNK, UNKNOWN
     Route: 065
  4. GLIFAGE [Concomitant]
     Dosage: 1000 MG, UNKNOWN
     Route: 065

REACTIONS (2)
  - HEPATIC CIRRHOSIS [None]
  - NAUSEA [None]
